FAERS Safety Report 4486814-0 (Version None)
Quarter: 2004Q4

REPORT INFORMATION
  Report Type: 
  Country: None (occurrence: None)
  Receive Date: 20041027
  Receipt Date: 20041022
  Transmission Date: 20050328
  Serious: Yes (Life-Threatening, Hospitalization)
  Sender: FDA-Public Use
  Company Number: US-MERCK-0410USA03604

PATIENT
  Age: 45 Year
  Sex: Female

DRUGS (2)
  1. VIOXX [Suspect]
     Indication: BACK PAIN
     Route: 048
     Dates: start: 20030301
  2. ESTROGENS (UNSPECIFIED) [Concomitant]
     Route: 065

REACTIONS (3)
  - DEPRESSION [None]
  - PULMONARY EMBOLISM [None]
  - SUICIDAL IDEATION [None]
